FAERS Safety Report 6076008-X (Version None)
Quarter: 2009Q1

REPORT INFORMATION
  Report Type: 
  Country: None (occurrence: None)
  Receive Date: 20090212
  Receipt Date: 20090202
  Transmission Date: 20090719
  Serious: Yes (Other)
  Sender: FDA-Public Use
  Company Number: NL-PFIZER INC-2009165108

PATIENT

DRUGS (9)
  1. EXEMESTANE [Suspect]
     Indication: BREAST CANCER
     Dosage: 25 MG, 1X/DAY
     Route: 048
     Dates: start: 20030101, end: 20080101
  2. TOLTERODINE TARTRATE [Concomitant]
     Dosage: 4MG OR 2MG DAILY
  3. TRIMETHOPRIM [Concomitant]
     Dosage: UNK
  4. SIMVASTATIN [Concomitant]
     Dosage: 40 MG, 1X/DAY
  5. METFORMIN [Concomitant]
     Dosage: 1 G, 2X/DAY
  6. TOLBUTAMIDE [Concomitant]
     Dosage: 500 MG, 3X/DAY
  7. LISINOPRIL [Concomitant]
     Dosage: 5 MG, 1X/DAY
  8. FOSAVANCE [Concomitant]
     Dosage: UNK
  9. ACETYLCYSTEINE [Concomitant]
     Dosage: 200 MG, 3X/DAY

REACTIONS (1)
  - MULTIPLE SCLEROSIS RELAPSE [None]
